FAERS Safety Report 6785808-X (Version None)
Quarter: 2010Q2

REPORT INFORMATION
  Report Type: 
  Country: None (occurrence: None)
  Receive Date: 20100623
  Receipt Date: 20100614
  Transmission Date: 20101027
  Serious: Yes (Hospitalization, Other)
  Sender: FDA-Public Use
  Company Number: DE-MPIJNJ-2010-03069

PATIENT

DRUGS (7)
  1. VELCADE [Suspect]
     Indication: MULTIPLE MYELOMA
     Dosage: 1.3 MG/M2, UNK
     Route: 042
     Dates: start: 20100608
  2. VELCADE [Suspect]
     Dosage: 1 MG/M2, UNK
     Route: 042
  3. DEXAMETHASONE ACETATE [Concomitant]
     Indication: MULTIPLE MYELOMA
     Dosage: 20 MG, UNK
  4. ACYCLOVIR [Concomitant]
     Indication: SEPSIS
     Dosage: UNK
     Dates: start: 20100601
  5. MERONEM                            /01250501/ [Concomitant]
     Indication: SEPSIS
     Dosage: UNK
     Dates: start: 20100601
  6. VFEND [Concomitant]
     Indication: SEPSIS
     Dosage: UNK
     Dates: start: 20100601
  7. CIPROFLOXACIN [Concomitant]
     Indication: SEPSIS
     Dosage: UNK
     Dates: start: 20100601

REACTIONS (3)
  - DELIRIUM [None]
  - HYPOTENSION [None]
  - PYREXIA [None]
